FAERS Safety Report 25449272 (Version 1)
Quarter: 2025Q2

REPORT INFORMATION
  Report Type: Spontaneous
  Country: US (occurrence: US)
  Receive Date: 20250618
  Receipt Date: 20250618
  Transmission Date: 20250716
  Serious: Yes (Other)
  Sender: SANOFI AVENTIS
  Company Number: US-SA-2025SA170840

PATIENT
  Age: 53 Year
  Sex: Male

DRUGS (2)
  1. CERDELGA [Suspect]
     Active Substance: ELIGLUSTAT
     Indication: Gaucher^s disease
     Dosage: 84 MG, BID
     Route: 048
     Dates: start: 2016
  2. TACROLIMUS [Suspect]
     Active Substance: TACROLIMUS

REACTIONS (3)
  - Renal impairment [Unknown]
  - Glomerular filtration rate abnormal [Unknown]
  - CYP2D6 polymorphism [Unknown]

NARRATIVE: CASE EVENT DATE: 20240701
